FAERS Safety Report 7653894-0 (Version None)
Quarter: 2011Q3

REPORT INFORMATION
  Report Type: 
  Country: None (occurrence: None)
  Receive Date: 20110727
  Receipt Date: 20110321
  Transmission Date: 20111222
  Serious: Yes (Other)
  Sender: FDA-Public Use
  Company Number: OMPQ-PR-1103S-0262

PATIENT
  Age: 51 Year
  Sex: Female

DRUGS (3)
  1. OMNIPAQUE 70 [Suspect]
     Indication: ABDOMINAL PAIN LOWER
     Dosage: 100 ML, SINGLE DOSE, INTRAVENOUS
     Route: 042
     Dates: start: 20110314, end: 20110314
  2. DIPHENHYDRAMINE (BENADRYL) (DIPHENHYDRAMINE HYDROCHLORIDE) [Concomitant]
  3. PREDNISONE [Concomitant]

REACTIONS (4)
  - URTICARIA [None]
  - THROAT IRRITATION [None]
  - HEART RATE INCREASED [None]
  - HYPERSENSITIVITY [None]
